FAERS Safety Report 4934099-0 (Version None)
Quarter: 2006Q1

REPORT INFORMATION
  Report Type: 
  Country: None (occurrence: None)
  Receive Date: 20060303
  Receipt Date: 20060215
  Transmission Date: 20060701
  Serious: Yes (Hospitalization)
  Sender: FDA-Public Use
  Company Number: DSA_81545_2006

PATIENT
  Age: 57 Year
  Sex: Female
  Weight: 65.7716 kg

DRUGS (20)
  1. XYREM [Suspect]
     Indication: DYSSOMNIA
     Dosage: 4.5 G TWICE NIGHTLY PO
     Route: 048
     Dates: start: 20051217, end: 20051230
  2. XYREM [Suspect]
     Indication: FIBROMYALGIA
     Dosage: 4.5 G TWICE NIGHTLY PO
     Route: 048
     Dates: start: 20051217, end: 20051230
  3. XYREM [Suspect]
     Indication: DYSSOMNIA
     Dosage: 1.5 G NIGHTLY PO
     Route: 048
     Dates: start: 20051230
  4. XYREM [Suspect]
     Indication: FIBROMYALGIA
     Dosage: 1.5 G NIGHTLY PO
     Route: 048
     Dates: start: 20051230
  5. XYREM [Suspect]
     Indication: DYSSOMNIA
     Dosage: 3 G TWICE NIGHTLY PO
     Route: 048
     Dates: end: 20060118
  6. XYREM [Suspect]
     Indication: FIBROMYALGIA
     Dosage: 3 G TWICE NIGHTLY PO
     Route: 048
     Dates: end: 20060118
  7. KLONOPIN [Suspect]
     Dosage: VAR BID PO
     Route: 048
     Dates: start: 20050825
  8. EFFEXOR [Concomitant]
  9. DOXYCYCLINE [Concomitant]
  10. NASONEX [Concomitant]
  11. MOBIC [Concomitant]
  12. ULTRAM [Concomitant]
  13. CLARINEX [Concomitant]
  14. PROTONIX [Concomitant]
  15. MULTIVITAMIN [Concomitant]
  16. NEURONTIN [Concomitant]
  17. PROVIGIL [Concomitant]
  18. LEVOXYL [Concomitant]
  19. MSM GLUCOSAMINE [Concomitant]
  20. B COMPLEX /00212701/ [Concomitant]

REACTIONS (13)
  - ABDOMINAL PAIN UPPER [None]
  - AGITATION [None]
  - BLOOD THYROID STIMULATING HORMONE INCREASED [None]
  - DIZZINESS [None]
  - DRUG INTERACTION [None]
  - IDIOSYNCRATIC DRUG REACTION [None]
  - MANIA [None]
  - NAUSEA [None]
  - PARANOIA [None]
  - PSYCHOTIC DISORDER [None]
  - REFUSAL OF TREATMENT BY PATIENT [None]
  - URINARY INCONTINENCE [None]
  - VOMITING [None]
